FAERS Safety Report 4399197-1 (Version None)
Quarter: 2004Q3

REPORT INFORMATION
  Report Type: 
  Country: None (occurrence: None)
  Receive Date: 20040715
  Receipt Date: 20040715
  Transmission Date: 20050211
  Serious: Yes (Other)
  Sender: FDA-Public Use
  Company Number: None

PATIENT
  Age: 55 Year
  Sex: Male
  Weight: 77.1115 kg

DRUGS (2)
  1. CLOZARIL [Suspect]
     Indication: SCHIZOPHRENIA
     Dosage: 3 TABLET EVERY AM ORAL
     Route: 048
     Dates: start: 20021021, end: 20040714
  2. CLOZARIL [Suspect]
     Dosage: 4 TABLET EVERY PM ORAL
     Route: 048
     Dates: start: 20021021, end: 20040714

REACTIONS (1)
  - WHITE BLOOD CELL COUNT INCREASED [None]
